FAERS Safety Report 10742850 (Version 1)
Quarter: 2015Q1

REPORT INFORMATION
  Report Type: Spontaneous
  Country: US (occurrence: GR)
  Receive Date: 20150127
  Receipt Date: 20150127
  Transmission Date: 20150721
  Serious: Yes (Other)
  Sender: FDA-Public Use
  Company Number: GR-FRI-1000073892

PATIENT
  Age: 80 Year
  Sex: Male

DRUGS (5)
  1. ATORVAL [Concomitant]
  2. ULTIBRO [Concomitant]
     Active Substance: GLYCOPYRRONIUM\INDACATEROL
  3. SELECTOL [Concomitant]
     Active Substance: CELIPROLOL
  4. SILODYX [Concomitant]
     Active Substance: SILODOSIN
  5. ROFLUMILAST [Suspect]
     Active Substance: ROFLUMILAST
     Indication: CHRONIC OBSTRUCTIVE PULMONARY DISEASE
     Dosage: 500 MCG
     Route: 048

REACTIONS (2)
  - Eye pruritus [Unknown]
  - Eyelid irritation [Unknown]

NARRATIVE: CASE EVENT DATE: 20141112
